FAERS Safety Report 19398060 (Version 1)
Quarter: 2021Q2

REPORT INFORMATION
  Report Type: Spontaneous
  Country: US (occurrence: US)
  Receive Date: 20210609
  Receipt Date: 20210609
  Transmission Date: 20210717
  Serious: Yes (Disabling)
  Sender: FDA-Public Use
  Company Number: None

PATIENT
  Age: 27 Month
  Sex: Male
  Weight: 13.05 kg

DRUGS (2)
  1. BUDESONIDE INHALATION SUSPENSION [Suspect]
     Active Substance: BUDESONIDE
     Indication: ASTHMA
     Route: 055
     Dates: start: 20200129, end: 20210522
  2. BUDESONIDE INHALATION SUSPENSION [Suspect]
     Active Substance: BUDESONIDE
     Indication: WHEEZING
     Route: 055
     Dates: start: 20200129, end: 20210522

REACTIONS (6)
  - Clumsiness [None]
  - Developmental delay [None]
  - Oral candidiasis [None]
  - Sleep disorder [None]
  - Behaviour disorder [None]
  - Aphasia [None]

NARRATIVE: CASE EVENT DATE: 20210522
